FAERS Safety Report 9238227 (Version 1)
Quarter: 2013Q2

REPORT INFORMATION
  Report Type: Spontaneous
  Country: US (occurrence: US)
  Receive Date: 20130418
  Receipt Date: 20130418
  Transmission Date: 20140414
  Serious: No
  Sender: FDA-Public Use
  Company Number: US-BAYER-2013-048509

PATIENT
  Age: 75 Year
  Sex: Female

DRUGS (1)
  1. CIPRO [Suspect]
     Indication: URINARY TRACT INFECTION
     Dosage: 750 MG, BID
     Dates: start: 20130405, end: 20130412

REACTIONS (1)
  - Vertigo [Not Recovered/Not Resolved]
